FAERS Safety Report 10963425 (Version 1)
Quarter: 2015Q1

REPORT INFORMATION
  Report Type: Spontaneous
  Country: US (occurrence: None)
  Receive Date: 20150326
  Receipt Date: 20150326
  Transmission Date: 20150721
  Serious: Yes (Other)
  Sender: FDA-Public Use
  Company Number: CIO15005399

PATIENT
  Sex: Male

DRUGS (1)
  1. METAMUCIL [Suspect]
     Active Substance: PLANTAGO SEED
     Dosage: AN AMOUNT SIMILAR TO A TEASPOON EVERY NIGT AROUND 9 PM FOR ABOUT 4 DAYS
     Route: 048
     Dates: start: 201501

REACTIONS (1)
  - Appendicitis [None]

NARRATIVE: CASE EVENT DATE: 201501
